FAERS Safety Report 7464785-2 (Version None)
Quarter: 2011Q2

REPORT INFORMATION
  Report Type: 
  Country: None (occurrence: None)
  Receive Date: 20110509
  Receipt Date: 20110408
  Transmission Date: 20111010
  Serious: Yes (Hospitalization, Other)
  Sender: FDA-Public Use
  Company Number: US-BAYER-201039207NA

PATIENT
  Age: 48 Year
  Sex: Female
  Weight: 84 kg

DRUGS (7)
  1. VICODIN [Concomitant]
  2. COUMADIN [Concomitant]
     Dosage: 7.5 MG, QD
  3. YASMIN [Suspect]
     Indication: PRODUCT USED FOR UNKNOWN INDICATION
     Dates: start: 20020304, end: 20060101
  4. BEXTRA [Concomitant]
     Indication: PRODUCT USED FOR UNKNOWN INDICATION
     Dosage: UNK
     Dates: start: 20030903
  5. ALBUTEROL INHALER [Concomitant]
     Indication: DYSPNOEA
  6. IBUPROFEN [Concomitant]
     Indication: PLEURITIC PAIN
  7. LEVAQUIN [Concomitant]

REACTIONS (2)
  - DEEP VEIN THROMBOSIS [None]
  - PULMONARY EMBOLISM [None]
